FAERS Safety Report 6725924-1 (Version None)
Quarter: 2010Q2

REPORT INFORMATION
  Report Type: 
  Country: None (occurrence: None)
  Receive Date: 20100514
  Receipt Date: 20100507
  Transmission Date: 20101027
  Serious: Yes (Hospitalization, Other)
  Sender: FDA-Public Use
  Company Number: US-SANOFI-AVENTIS-F01200900521

PATIENT
  Age: 72 Year
  Sex: Male

DRUGS (11)
  1. OXALIPLATIN [Suspect]
     Route: 041
     Dates: start: 20090422, end: 20090422
  2. LEUCOVORIN CALCIUM [Suspect]
     Route: 065
     Dates: start: 20090422, end: 20090422
  3. FLUOROURACIL [Suspect]
     Route: 040
     Dates: start: 20090424, end: 20090424
  4. FLUOROURACIL [Suspect]
     Route: 041
     Dates: start: 20090424, end: 20090425
  5. INVESTIGATIONAL DRUG [Suspect]
     Route: 048
     Dates: start: 20090313, end: 20090501
  6. BEVACIZUMAB [Suspect]
     Route: 065
     Dates: start: 20090422, end: 20090422
  7. LISINOPRIL [Concomitant]
  8. HYDROCHLOROTHIAZIDE [Concomitant]
  9. CLONIDINE [Concomitant]
  10. PHENERGAN ^SPECIA^ [Concomitant]
  11. ZOFRAN [Concomitant]

REACTIONS (2)
  - CHOLECYSTITIS [None]
  - RENAL FAILURE ACUTE [None]
